FAERS Safety Report 20655561 (Version 1)
Quarter: 2022Q1

REPORT INFORMATION
  Report Type: Other
  Country: None (occurrence: US)
  Receive Date: 20220330
  Receipt Date: 20220330
  Transmission Date: 20220423
  Serious: Yes (Other)
  Sender: FDA-Public Use
  Company Number: US-Ascent Pharmaceuticals, Inc.-2127253

PATIENT

DRUGS (1)
  1. DEXTROAMPHET SACCHARAT, AMPHET ASPARTATE, DEXTROAMPHET SULFATE AND AMP [Suspect]
     Active Substance: AMPHETAMINE ASPARTATE\AMPHETAMINE SULFATE\DEXTROAMPHETAMINE SACCHARATE\DEXTROAMPHETAMINE SULFATE
     Indication: Product used for unknown indication
     Route: 065

REACTIONS (15)
  - Suicidal ideation [Unknown]
  - Disturbance in attention [Unknown]
  - Impaired work ability [Unknown]
  - Memory impairment [Unknown]
  - Dissociative disorder [Unknown]
  - Confusional state [Unknown]
  - Somnolence [Unknown]
  - Bruxism [Unknown]
  - Headache [Unknown]
  - Nausea [Unknown]
  - Depression [Unknown]
  - Raynaud^s phenomenon [Unknown]
  - Irritability [Unknown]
  - Drug ineffective [Unknown]
  - Product substitution issue [Unknown]
